FAERS Safety Report 5271879-9 (Version None)
Quarter: 2007Q1

REPORT INFORMATION
  Report Type: 
  Country: None (occurrence: None)
  Receive Date: 20070316
  Receipt Date: 20070301
  Transmission Date: 20070707
  Serious: Yes (Hospitalization, Disabling)
  Sender: FDA-Public Use
  Company Number: 8022471

PATIENT
  Sex: Female
  Weight: 51 kg

DRUGS (3)
  1. KEPPRA [Suspect]
     Dosage: 1 G 3/D;PO
     Route: 048
     Dates: start: 20061001
  2. VALPROIC ACID [Suspect]
     Dosage: 500 MG 6/D;PO
     Route: 048
  3. CARBAMAZEPINE [Suspect]
     Dosage: 400 MG;PO
     Route: 048
     Dates: start: 20070207, end: 20070227

REACTIONS (2)
  - ANTICONVULSANT DRUG LEVEL ABOVE THERAPEUTIC [None]
  - ANTICONVULSANT DRUG LEVEL BELOW THERAPEUTIC [None]
